FAERS Safety Report 9622665 (Version 1)
Quarter: 2013Q4

REPORT INFORMATION
  Report Type: Spontaneous
  Country: US (occurrence: US)
  Receive Date: 20131015
  Receipt Date: 20131015
  Transmission Date: 20140711
  Serious: Yes (Other)
  Sender: FDA-Public Use
  Company Number: US-PFIZER INC-2013292944

PATIENT
  Age: 57 Year
  Sex: Female
  Weight: 81.63 kg

DRUGS (9)
  1. CELEBREX [Suspect]
     Indication: OSTEOARTHRITIS
     Dosage: 200 MG, 1X/DAY
  2. CELEBREX [Suspect]
     Indication: FIBROMYALGIA
  3. CELEBREX [Suspect]
     Indication: OSTEOARTHRITIS
  4. NEURONTIN [Suspect]
     Indication: PAIN
     Dosage: 600 MG, 3X/DAY
  5. NEURONTIN [Suspect]
     Indication: DISCOMFORT
  6. VIOXX [Suspect]
     Indication: OSTEOARTHRITIS
     Dosage: UNK
  7. LABETALOL [Concomitant]
     Indication: HYPERTENSION
     Dosage: 300 MG, 2X/DAY
  8. HYDROCHLOROTHIAZIDE [Concomitant]
     Indication: HYPERTENSION
     Dosage: 25 MG, 1X/DAY
  9. DEXILANT [Concomitant]
     Indication: HIATUS HERNIA
     Dosage: 60 MG, 2X/DAY

REACTIONS (4)
  - Diabetes mellitus [Unknown]
  - Diabetic neuropathy [Unknown]
  - Abnormal dreams [Unknown]
  - Off label use [Unknown]
